FAERS Safety Report 4869587-9 (Version None)
Quarter: 2005Q4

REPORT INFORMATION
  Report Type: 
  Country: None (occurrence: None)
  Receive Date: 20051230
  Receipt Date: 20051114
  Transmission Date: 20060501
  Serious: Yes (Hospitalization)
  Sender: FDA-Public Use
  Company Number: FR-SANOFI-SYNTHELABO-A02200502966

PATIENT
  Age: 69 Year
  Sex: Male

DRUGS (6)
  1. PLAVIX [Suspect]
     Indication: MYOCARDIAL INFARCTION
     Dosage: UNK
     Route: 048
     Dates: end: 20050210
  2. AMAREL [Concomitant]
     Dosage: UNK
     Route: 048
     Dates: end: 20050210
  3. NITRODERM [Concomitant]
     Route: 062
  4. LOXEN [Concomitant]
     Route: 048
  5. SELOKEN [Concomitant]
     Route: 048
  6. NEXIUM [Concomitant]
     Route: 048

REACTIONS (4)
  - DUODENITIS [None]
  - HAEMATEMESIS [None]
  - NORMOCHROMIC NORMOCYTIC ANAEMIA [None]
  - OESOPHAGITIS ULCERATIVE [None]
